FAERS Safety Report 20450042 (Version 1)
Quarter: 2022Q1

REPORT INFORMATION
  Report Type: Spontaneous
  Country: US (occurrence: None)
  Receive Date: 20220208
  Receipt Date: 20220208
  Transmission Date: 20220423
  Serious: Yes (Hospitalization, Disabling)
  Sender: FDA-Public Use
  Company Number: None

PATIENT
  Age: 83 Year
  Sex: Female
  Weight: 40.95 kg

DRUGS (9)
  1. WARFARIN [Suspect]
     Active Substance: WARFARIN
     Indication: Mitral valve replacement
     Dosage: OTHER QUANTITY : 30 TABLET(S);?FREQUENCY : DAILY;?
     Route: 048
     Dates: start: 20210101, end: 20210201
  2. MONTELUKAST [Concomitant]
     Active Substance: MONTELUKAST SODIUM
  3. SIMVASTATIN [Concomitant]
     Active Substance: SIMVASTATIN
  4. DIGOXIN [Concomitant]
     Active Substance: DIGOXIN
  5. METOPROLOL [Concomitant]
     Active Substance: METOPROLOL
  6. BUMETANIDE [Concomitant]
     Active Substance: BUMETANIDE
  7. losartan potasim [Concomitant]
  8. SPIRONOLACTONE [Concomitant]
     Active Substance: SPIRONOLACTONE
  9. ensure nutritional drink [Concomitant]

REACTIONS (5)
  - Arthralgia [None]
  - Contusion [None]
  - Joint swelling [None]
  - Gait inability [None]
  - International normalised ratio increased [None]

NARRATIVE: CASE EVENT DATE: 20220201
